FAERS Safety Report 25408611 (Version 1)
Quarter: 2025Q2

REPORT INFORMATION
  Report Type: Spontaneous
  Country: NO (occurrence: NO)
  Receive Date: 20250606
  Receipt Date: 20250606
  Transmission Date: 20250717
  Serious: Yes (Other)
  Sender: ORGANON
  Company Number: None

PATIENT
  Age: 15 Year
  Sex: Female

DRUGS (5)
  1. MAXALT [Suspect]
     Active Substance: RIZATRIPTAN BENZOATE
     Indication: Migraine
     Route: 048
     Dates: start: 20240927
  2. NAPROXEN VIATRIS [Concomitant]
  3. PANADOL [Concomitant]
     Active Substance: ACETAMINOPHEN
  4. FEXOFENADINE [Concomitant]
     Active Substance: FEXOFENADINE HYDROCHLORIDE
  5. MELLEVA [ETHINYLESTRADIOL;LEVONORGESTREL] [Concomitant]

REACTIONS (5)
  - Angioedema [Recovered/Resolved]
  - Erythema [Recovered/Resolved]
  - Pharyngeal swelling [Recovered/Resolved]
  - Pain of skin [Recovered/Resolved]
  - Product use issue [Unknown]

NARRATIVE: CASE EVENT DATE: 20240927
